FAERS Safety Report 20623338 (Version 1)
Quarter: 2022Q1

REPORT INFORMATION
  Report Type: Spontaneous
  Country: CN (occurrence: CN)
  Receive Date: 20220322
  Receipt Date: 20220322
  Transmission Date: 20220424
  Serious: Yes (Other)
  Sender: FDA-Public Use
  Company Number: CN-NOVARTISPH-NVSC2022CN062947

PATIENT
  Age: 7 Year
  Sex: Male

DRUGS (6)
  1. DEXAMETHASONE\TOBRAMYCIN [Suspect]
     Active Substance: DEXAMETHASONE\TOBRAMYCIN
     Indication: Iridocyclitis
     Dosage: UNK
     Route: 047
  2. PREDNISONE ACETATE [Suspect]
     Active Substance: PREDNISONE ACETATE
     Indication: Iridocyclitis
     Dosage: UNK
     Route: 047
  3. PRANOPROFEN [Suspect]
     Active Substance: PRANOPROFEN
     Indication: Iridocyclitis
     Dosage: UNK
     Route: 047
  4. DICLOFENAC SODIUM [Suspect]
     Active Substance: DICLOFENAC SODIUM
     Indication: Iridocyclitis
     Dosage: UNK
     Route: 047
  5. METHOTREXATE [Concomitant]
     Active Substance: METHOTREXATE
     Indication: Juvenile idiopathic arthritis
     Dosage: UNK
     Route: 065
  6. INFLIXIMAB [Concomitant]
     Active Substance: INFLIXIMAB
     Indication: Juvenile idiopathic arthritis
     Dosage: 3 MG/KG, ONCE AT WEEKS 0, 2, AND 6, AND THEN ONCE EVERY 8 WEEKS
     Route: 065

REACTIONS (2)
  - Iridocyclitis [Unknown]
  - Product use issue [Unknown]
